FAERS Safety Report 5995351-3 (Version None)
Quarter: 2008Q4

REPORT INFORMATION
  Report Type: 
  Country: None (occurrence: None)
  Receive Date: 20081212
  Receipt Date: 20080925
  Transmission Date: 20090506
  Serious: No
  Sender: FDA-Public Use
  Company Number: US-ABBOTT-08P-163-0478770-00

PATIENT
  Sex: Female
  Weight: 53.572 kg

DRUGS (7)
  1. HUMIRA [Suspect]
     Indication: SJOGREN'S SYNDROME
     Route: 050
     Dates: start: 20080901
  2. HUMIRA [Suspect]
     Indication: ARTHRITIS
  3. CLONAZEPAM [Concomitant]
     Indication: DRUG USE FOR UNKNOWN INDICATION
     Route: 048
     Dates: start: 20080501
  4. PREDNISONE TAB [Concomitant]
     Indication: DRUG USE FOR UNKNOWN INDICATION
     Route: 048
     Dates: start: 20071001
  5. HYDROCODONE BITARTRATE [Concomitant]
     Indication: DRUG USE FOR UNKNOWN INDICATION
     Dosage: 10/650 MG
     Route: 048
  6. VIVALE-ESTROGEN PATCH [Concomitant]
     Indication: DRUG USE FOR UNKNOWN INDICATION
     Dosage: 1 PATCH 2 TIMES A WEEK
     Route: 062
  7. DIOZIDE [Concomitant]
     Indication: DRUG USE FOR UNKNOWN INDICATION
     Route: 048

REACTIONS (3)
  - MYALGIA [None]
  - PYREXIA [None]
  - URTICARIA [None]
